FAERS Safety Report 5365283-2 (Version None)
Quarter: 2007Q2

REPORT INFORMATION
  Report Type: 
  Country: None (occurrence: None)
  Receive Date: 20070530
  Receipt Date: 20070131
  Transmission Date: 20071010
  Serious: No
  Sender: FDA-Public Use
  Company Number: 2006PV022299

PATIENT
  Age: 64 Year
  Sex: Female
  Weight: 66.2252 kg

DRUGS (13)
  1. BYETTA [Suspect]
     Indication: DIABETES MELLITUS NON-INSULIN-DEPENDENT
     Dosage: 10 MCG;BID;SC 5 MCG;BID;SC 5 MCG;BID;SCS
     Route: 058
     Dates: start: 20060801, end: 20060901
  2. BYETTA [Suspect]
     Indication: DIABETES MELLITUS NON-INSULIN-DEPENDENT
     Dosage: 10 MCG;BID;SC 5 MCG;BID;SC 5 MCG;BID;SCS
     Route: 058
     Dates: start: 20060901, end: 20060925
  3. BYETTA [Suspect]
     Indication: DIABETES MELLITUS NON-INSULIN-DEPENDENT
     Dosage: 10 MCG;BID;SC 5 MCG;BID;SC 5 MCG;BID;SCS
     Route: 058
     Dates: start: 20060926
  4. BYETTA [Suspect]
  5. GLUCOPHAGE [Concomitant]
  6. AMARYL [Concomitant]
  7. ALTACE [Concomitant]
  8. TOPROL-XL [Concomitant]
  9. TRICOR [Concomitant]
  10. AMITRIPTYLINE HCL [Concomitant]
  11. MULTIVITAMIN [Concomitant]
  12. HYDROCHLOROTHIAZIDE [Concomitant]
  13. NEXIUM [Concomitant]

REACTIONS (7)
  - BLOOD GLUCOSE INCREASED [None]
  - DYSGEUSIA [None]
  - NAUSEA [None]
  - SINUS HEADACHE [None]
  - SINUS OPERATION [None]
  - VOMITING [None]
  - WEIGHT DECREASED [None]
